FAERS Safety Report 8234127-3 (Version None)
Quarter: 2012Q1

REPORT INFORMATION
  Report Type: 
  Country: None (occurrence: None)
  Receive Date: 20120326
  Receipt Date: 20120318
  Transmission Date: 20120608
  Serious: No
  Sender: FDA-Public Use
  Company Number: US-PFIZER INC-2011297671

PATIENT
  Age: 55 Year
  Sex: Male

DRUGS (2)
  1. BENEFIX [Suspect]
     Dosage: 250 IU, UNK
  2. BENEFIX [Suspect]
     Dosage: UNKNOWN DOSE AND FREQUENCY

REACTIONS (1)
  - INCORRECT DOSE ADMINISTERED [None]
